FAERS Safety Report 18557019 (Version 1)
Quarter: 2020Q4

REPORT INFORMATION
  Report Type: Report from Study
  Country: US (occurrence: US)
  Receive Date: 20201129
  Receipt Date: 20201129
  Transmission Date: 20210114
  Serious: No
  Sender: FDA-Public Use
  Company Number: NVSC2020US312633

PATIENT
  Sex: Female

DRUGS (2)
  1. XIIDRA [Suspect]
     Active Substance: LIFITEGRAST
     Indication: BLEPHAROSPASM
  2. XIIDRA [Suspect]
     Active Substance: LIFITEGRAST
     Indication: EYE PAIN
     Dosage: UNK, BID (DRP)
     Route: 047
     Dates: start: 20200613

REACTIONS (1)
  - Insomnia [Not Recovered/Not Resolved]
